FAERS Safety Report 8334565-4 (Version None)
Quarter: 2012Q2

REPORT INFORMATION
  Report Type: 
  Country: None (occurrence: None)
  Receive Date: 20120503
  Receipt Date: 20120425
  Transmission Date: 20120825
  Serious: Yes (Other)
  Sender: FDA-Public Use
  Company Number: JP-VERTEX PHARMACEUTICALS INC.-AE-2012-006221

PATIENT
  Age: 72 Year
  Sex: Female

DRUGS (5)
  1. REBETOL [Concomitant]
     Route: 048
     Dates: start: 20120326, end: 20120402
  2. PEGINTERFERON ALFA-2B [Concomitant]
     Indication: HEPATITIS C
     Route: 051
     Dates: start: 20120220
  3. TELAVIC (TELAPREVIR) [Suspect]
     Route: 048
     Dates: start: 20120326
  4. TELAVIC (TELAPREVIR) [Suspect]
     Indication: HEPATITIS C
     Route: 048
     Dates: start: 20120220, end: 20120325
  5. REBETOL [Concomitant]
     Indication: HEPATITIS C
     Route: 048
     Dates: start: 20120220, end: 20120325

REACTIONS (1)
  - RENAL IMPAIRMENT [None]
